FAERS Safety Report 12890845 (Version 4)
Quarter: 2017Q2

REPORT INFORMATION
  Report Type: Spontaneous
  Country: DK (occurrence: DK)
  Receive Date: 20161027
  Receipt Date: 20170427
  Transmission Date: 20170830
  Serious: Yes (Death)
  Sender: FDA-Public Use
  Company Number: DK-BAXALTA-2016BLT007611

PATIENT
  Age: 8 Year
  Sex: Female
  Weight: 24.7 kg

DRUGS (6)
  1. 6-MERCAPTOPURINE MONOHYDRATE [Concomitant]
     Active Substance: MERCAPTOPURINE
     Indication: B PRECURSOR TYPE ACUTE LEUKAEMIA
     Dosage: 25 MG, 1X A DAY
     Route: 048
     Dates: start: 20160412
  2. METHOTREXATE. [Concomitant]
     Active Substance: METHOTREXATE
     Indication: B PRECURSOR TYPE ACUTE LEUKAEMIA
     Dosage: UNK
     Route: 037
     Dates: start: 20160411, end: 20160411
  3. VINCRISTINE [Concomitant]
     Active Substance: VINCRISTINE
     Indication: B PRECURSOR TYPE ACUTE LEUKAEMIA
     Dosage: UNK
     Route: 065
     Dates: start: 20160321, end: 20160321
  4. ONCASPAR [Suspect]
     Active Substance: PEGASPARGASE
     Dosage: 1000 IU/M2, EVERY 2 WK
     Route: 030
     Dates: start: 20160411, end: 20160411
  5. METHOTREXATE. [Concomitant]
     Active Substance: METHOTREXATE
     Dosage: HIGH DOSE
     Route: 037
     Dates: start: 20160418, end: 20160418
  6. ONCASPAR [Suspect]
     Active Substance: PEGASPARGASE
     Indication: B PRECURSOR TYPE ACUTE LEUKAEMIA
     Dosage: 1000 IU/M2, EVERY 2 WK
     Route: 030
     Dates: start: 20160425, end: 20160425

REACTIONS (5)
  - Hepatic steatosis [Fatal]
  - Hepatic necrosis [Fatal]
  - Pancreatitis haemorrhagic [Fatal]
  - Fat necrosis [Fatal]
  - Multiple organ dysfunction syndrome [Fatal]

NARRATIVE: CASE EVENT DATE: 20160505
